FAERS Safety Report 20050409 (Version 1)
Quarter: 2021Q4

REPORT INFORMATION
  Report Type: Spontaneous
  Country: RO (occurrence: RO)
  Receive Date: 20211109
  Receipt Date: 20211109
  Transmission Date: 20220303
  Serious: Yes (Other)
  Sender: FDA-Public Use
  Company Number: RO-TAKEDA-2021TUS067914

PATIENT
  Age: 29 Year
  Sex: Male

DRUGS (1)
  1. ADCETRIS [Suspect]
     Active Substance: BRENTUXIMAB VEDOTIN
     Indication: Hodgkin^s disease refractory
     Dosage: UNK, Q3WEEKS
     Route: 042
     Dates: start: 201907, end: 202008

REACTIONS (3)
  - Pneumonia respiratory syncytial viral [Recovered/Resolved]
  - Sinusitis [Recovered/Resolved]
  - Facial paresis [Recovered/Resolved]
